FAERS Safety Report 6743304-X (Version None)
Quarter: 2010Q2

REPORT INFORMATION
  Report Type: 
  Country: None (occurrence: None)
  Receive Date: 20100527
  Receipt Date: 20100520
  Transmission Date: 20101027
  Serious: Yes (Other)
  Sender: FDA-Public Use
  Company Number: IT-ASTRAZENECA-2010SE23239

PATIENT
  Age: 45 Year
  Sex: Female

DRUGS (1)
  1. QUETIAPINE [Suspect]
     Dosage: 13 TABLEST OF 100 MG

REACTIONS (4)
  - DRUG ABUSE [None]
  - ELECTROCARDIOGRAM ST-T SEGMENT ELEVATION [None]
  - OVERDOSE [None]
  - SUICIDE ATTEMPT [None]
